FAERS Safety Report 9621021 (Version 3)
Quarter: 2014Q2

REPORT INFORMATION
  Report Type: Spontaneous
  Country: FR (occurrence: FR)
  Receive Date: 20131015
  Receipt Date: 20140429
  Transmission Date: 20141212
  Serious: Yes (Hospitalization)
  Sender: FDA-Public Use
  Company Number: FR-JNJFOC-20131006095

PATIENT
  Age: 93 Year
  Sex: Female

DRUGS (5)
  1. XARELTO [Suspect]
     Indication: EMBOLISM VENOUS
     Route: 048
     Dates: start: 20130823, end: 20130912
  2. XARELTO [Suspect]
     Indication: DEEP VEIN THROMBOSIS
     Route: 048
     Dates: start: 20130823, end: 20130912
  3. QUESTRAN [Concomitant]
     Route: 048
  4. DESLORATADINE [Concomitant]
     Route: 048
  5. ALPRAZOLAM [Concomitant]
     Route: 048

REACTIONS (1)
  - Dyskinesia [Recovering/Resolving]
